FAERS Safety Report 9044616 (Version 2)
Quarter: 2013Q1

REPORT INFORMATION
  Report Type: Spontaneous
  Country: US (occurrence: US)
  Receive Date: 20130130
  Receipt Date: 20130221
  Transmission Date: 20140127
  Serious: No
  Sender: FDA-Public Use
  Company Number: US-ROXANE LABORATORIES, INC.-2013-RO-00142RO

PATIENT
  Age: 54 Year
  Sex: Female

DRUGS (7)
  1. METHADONE [Suspect]
     Indication: PAIN
     Dosage: 80 MG
     Route: 048
  2. POTASSIUM [Concomitant]
  3. TOPIRAMATE [Concomitant]
     Dosage: 400 MG
  4. RANITIDINE [Concomitant]
  5. ASPIRIN [Concomitant]
  6. ACYCLOVIR [Concomitant]
  7. ATRIPLA [Concomitant]

REACTIONS (3)
  - Vomiting [Not Recovered/Not Resolved]
  - Abdominal pain upper [Not Recovered/Not Resolved]
  - Product quality issue [Not Recovered/Not Resolved]
